FAERS Safety Report 19694817 (Version 1)
Quarter: 2021Q3

REPORT INFORMATION
  Report Type: Spontaneous
  Country: DE (occurrence: DE)
  Receive Date: 20210813
  Receipt Date: 20210813
  Transmission Date: 20211014
  Serious: Yes (Hospitalization)
  Sender: FDA-Public Use
  Company Number: DE-TEVA-2021-DE-1940772

PATIENT
  Age: 70 Year
  Sex: Female

DRUGS (6)
  1. CLINDAMYCIN. [Suspect]
     Active Substance: CLINDAMYCIN
     Dosage: TAKEN UNTIL MAY 7TH,
     Route: 048
  2. ACETYLSALICYLICSAURE [Concomitant]
     Dosage: 100 MILLIGRAM DAILY;   1?0?0?0
     Route: 048
  3. AMLODIPINE [Concomitant]
     Active Substance: AMLODIPINE BESYLATE
     Dosage: 5 MILLIGRAM DAILY;   1?0?0?0,
     Route: 048
  4. LEVOTHYROXINE NATRIUM [Concomitant]
     Dosage: 75 MICROGRAM DAILY;   1?0?0?0
     Route: 048
  5. METOPROLOL. [Concomitant]
     Active Substance: METOPROLOL
     Dosage: 190 MILLIGRAM DAILY;  1?0?1?0,
     Route: 048
  6. CANDESARTAN. [Concomitant]
     Active Substance: CANDESARTAN
     Dosage: 16 MILLIGRAM DAILY;   1?0?0?0,
     Route: 048

REACTIONS (4)
  - Chills [Recovering/Resolving]
  - General physical health deterioration [Recovering/Resolving]
  - Fatigue [Recovering/Resolving]
  - Diarrhoea [Recovering/Resolving]
